FAERS Safety Report 6251793-2 (Version None)
Quarter: 2009Q2

REPORT INFORMATION
  Report Type: 
  Country: None (occurrence: None)
  Receive Date: 20090630
  Receipt Date: 20090630
  Transmission Date: 20091009
  Serious: Yes (Other)
  Sender: FDA-Public Use
  Company Number: US-PFIZER INC-2009210046

PATIENT
  Sex: Male

DRUGS (11)
  1. LYRICA [Suspect]
     Route: 048
     Dates: start: 20090501, end: 20090501
  2. TRAZODONE [Concomitant]
     Dosage: 50 MG, UNK
  3. METOLAZONE [Concomitant]
     Dosage: 5 MG, UNK
  4. POTASSIUM [Concomitant]
     Dosage: UNK
  5. PRAVASTATIN [Concomitant]
     Dosage: UNK
  6. OXYCONTIN [Concomitant]
     Dosage: UNK
  7. METOPROLOL [Concomitant]
     Dosage: UNK
  8. BACLOFEN [Concomitant]
     Dosage: UNK
  9. LORAZEPAM [Concomitant]
     Dosage: UNK
  10. TERAZOSIN [Concomitant]
     Dosage: UNK
  11. CELLCEPT [Concomitant]
     Dosage: UNK

REACTIONS (3)
  - AGGRESSION [None]
  - CONTUSION [None]
  - MOOD SWINGS [None]
